FAERS Safety Report 7078848-7 (Version None)
Quarter: 2010Q4

REPORT INFORMATION
  Report Type: 
  Country: None (occurrence: None)
  Receive Date: 20101102
  Receipt Date: 20101021
  Transmission Date: 20110411
  Serious: Yes (Hospitalization)
  Sender: FDA-Public Use
  Company Number: JP-JNJFOC-20101005457

PATIENT
  Sex: Male

DRUGS (13)
  1. LEVOFLOXACIN [Suspect]
     Indication: UPPER RESPIRATORY TRACT INFECTION
     Route: 048
  2. CORTRIL [Suspect]
     Indication: HYPOPITUITARISM
     Route: 048
  3. CORTRIL [Suspect]
     Route: 048
  4. ARTIST [Concomitant]
     Indication: MYOCARDIAL INFARCTION
     Route: 048
  5. ALDACTONE [Concomitant]
     Indication: MYOCARDIAL INFARCTION
     Route: 048
  6. LASIX [Concomitant]
     Indication: MYOCARDIAL INFARCTION
     Route: 048
  7. THYRADIN S [Concomitant]
     Indication: HYPOPITUITARISM
     Route: 048
  8. LIPITOR [Concomitant]
     Indication: MYOCARDIAL INFARCTION
     Route: 048
  9. GASTER [Concomitant]
     Indication: MYOCARDIAL INFARCTION
     Route: 048
  10. NU-LOTAN [Concomitant]
     Indication: MYOCARDIAL INFARCTION
     Route: 048
  11. 8-HOUR BAYER [Concomitant]
     Indication: MYOCARDIAL INFARCTION
     Route: 048
  12. SELBEX [Concomitant]
     Indication: MYOCARDIAL INFARCTION
     Route: 048
  13. KAMAG G [Concomitant]
     Indication: MYOCARDIAL INFARCTION
     Route: 048

REACTIONS (4)
  - ADRENAL DISORDER [None]
  - ALVEOLITIS ALLERGIC [None]
  - HYPOGLYCAEMIA [None]
  - HYPONATRAEMIA [None]
